FAERS Safety Report 9214945 (Version 1)
Quarter: 2013Q2

REPORT INFORMATION
  Report Type: Report from Study
  Country: US (occurrence: US)
  Receive Date: 20130405
  Receipt Date: 20130405
  Transmission Date: 20140414
  Serious: Yes (Other)
  Sender: FDA-Public Use
  Company Number: US-AMGEN-US363691

PATIENT
  Age: 78 Year
  Sex: Male

DRUGS (6)
  1. DENOSUMAB [Suspect]
     Indication: PROSTATE CANCER
     Dosage: UNK UNK, Q4WK
     Route: 058
     Dates: start: 20071129, end: 20090710
  2. DIGOXIN [Concomitant]
     Dosage: .125 MG, QD
     Route: 048
     Dates: start: 2005
  3. LISINOPRIL [Concomitant]
     Dosage: 10 MG, QD
     Route: 048
     Dates: start: 2005, end: 20090727
  4. ATORVASTATIN CALCIUM [Concomitant]
     Dosage: 40 MG, QD
     Route: 048
     Dates: start: 2005
  5. ERGOCALCIFEROL [Concomitant]
     Dosage: 400 MG, QD
     Route: 048
     Dates: start: 2003
  6. BEVACIZUMAB [Concomitant]
     Dosage: UNK UNK, Q6MO
     Route: 031
     Dates: start: 20071220

REACTIONS (1)
  - Osteonecrosis of jaw [Not Recovered/Not Resolved]
